FAERS Safety Report 7236604-0 (Version None)
Quarter: 2011Q1

REPORT INFORMATION
  Report Type: 
  Country: None (occurrence: None)
  Receive Date: 20110120
  Receipt Date: 20100330
  Transmission Date: 20110831
  Serious: No
  Sender: FDA-Public Use
  Company Number: US-BAUSCH-2010BL001764

PATIENT
  Sex: Female

DRUGS (1)
  1. TOBRAMYCIN [Suspect]
     Indication: OCULAR HYPERAEMIA
     Route: 047
     Dates: start: 20100327, end: 20100330

REACTIONS (1)
  - DRUG INEFFECTIVE [None]
